FAERS Safety Report 20973598 (Version 1)
Quarter: 2022Q2

REPORT INFORMATION
  Report Type: Spontaneous
  Country: FR (occurrence: FR)
  Receive Date: 20220617
  Receipt Date: 20220617
  Transmission Date: 20220721
  Serious: Yes (Hospitalization, Other)
  Sender: FDA-Public Use
  Company Number: FR-AFSSAPS-PO20221196

PATIENT
  Age: 72 Year
  Sex: Male
  Weight: 65 kg

DRUGS (4)
  1. AMOXICILLIN [Suspect]
     Active Substance: AMOXICILLIN
     Indication: Sinusitis
     Dosage: UNK
     Route: 048
     Dates: start: 20220117, end: 20220201
  2. PREDNISOLONE [Suspect]
     Active Substance: PREDNISOLONE
     Indication: Sinusitis
     Dosage: 60 MILLIGRAM, ONCE A DAY
     Route: 048
     Dates: start: 20220125, end: 20220128
  3. CLAVULANIC ACID [Suspect]
     Active Substance: CLAVULANIC ACID
     Indication: Sinusitis
     Dosage: UNK
     Route: 048
     Dates: start: 20220125, end: 20220201
  4. EZETIMIBE\ROSUVASTATIN CALCIUM [Suspect]
     Active Substance: EZETIMIBE\ROSUVASTATIN CALCIUM
     Indication: Dyslipidaemia
     Dosage: 1 DOSAGE FORM, ONCE A DAY
     Route: 048
     Dates: start: 202201, end: 20220207

REACTIONS (1)
  - Mixed liver injury [Recovered/Resolved]

NARRATIVE: CASE EVENT DATE: 20220207
